FAERS Safety Report 20559499 (Version 1)
Quarter: 2022Q1

REPORT INFORMATION
  Report Type: Spontaneous
  Country: US (occurrence: US)
  Receive Date: 20220307
  Receipt Date: 20220307
  Transmission Date: 20220424
  Serious: No
  Sender: FDA-Public Use
  Company Number: US-GW PHARMA-202202USGW00986

PATIENT
  Sex: Female
  Weight: 102.49 kg

DRUGS (1)
  1. EPIDIOLEX [Suspect]
     Active Substance: CANNABIDIOL
     Indication: Lennox-Gastaut syndrome
     Dosage: 3.9 MG/KG/DAY, 200 MILLIGRAM, BID
     Route: 048
     Dates: start: 20210825

REACTIONS (1)
  - Skin hyperpigmentation [Unknown]
